FAERS Safety Report 11600977 (Version 1)
Quarter: 2015Q4

REPORT INFORMATION
  Report Type: Spontaneous
  Country: US (occurrence: US)
  Receive Date: 20151006
  Receipt Date: 20151006
  Transmission Date: 20160304
  Serious: No
  Sender: FDA-Public Use
  Company Number: US-AMGEN-USASP2015010799

PATIENT
  Sex: Male

DRUGS (1)
  1. PROLIA [Suspect]
     Active Substance: DENOSUMAB
     Indication: OSTEOPOROSIS
     Dosage: UNK, Q6MO
     Route: 065
     Dates: start: 2014

REACTIONS (10)
  - Musculoskeletal pain [Unknown]
  - Bone pain [Unknown]
  - Pain [Unknown]
  - Tremor [Unknown]
  - Feeling abnormal [Unknown]
  - Back pain [Unknown]
  - Headache [Unknown]
  - Neck pain [Unknown]
  - Pain in extremity [Unknown]
  - Eye pain [Unknown]

NARRATIVE: CASE EVENT DATE: 2014
